FAERS Safety Report 4462491-X (Version None)
Quarter: 2004Q3

REPORT INFORMATION
  Report Type: 
  Country: None (occurrence: None)
  Receive Date: 20040924
  Receipt Date: 20040915
  Transmission Date: 20050211
  Serious: Yes (Life-Threatening, Hospitalization)
  Sender: FDA-Public Use
  Company Number: 2004AP04831

PATIENT
  Age: 35 Year
  Sex: Female
  Weight: 75 kg

DRUGS (3)
  1. IRESSA [Suspect]
     Indication: OVARIAN CANCER
     Dosage: 250 MG DAILY PO
     Route: 048
     Dates: start: 20040709, end: 20040902
  2. ELOXATIN [Suspect]
     Indication: OVARIAN CANCER
  3. NAVELBINE [Suspect]
     Indication: OVARIAN CANCER

REACTIONS (2)
  - DISEASE PROGRESSION [None]
  - FEBRILE NEUTROPENIA [None]
